FAERS Safety Report 14366225 (Version 1)
Quarter: 2018Q1

REPORT INFORMATION
  Report Type: Spontaneous
  Country: US (occurrence: US)
  Receive Date: 20180109
  Receipt Date: 20180109
  Transmission Date: 20180509
  Serious: No
  Sender: FDA-Public Use
  Company Number: US-ASTRAZENECA-2018SE02170

PATIENT
  Sex: Female

DRUGS (3)
  1. SEROQUEL [Suspect]
     Active Substance: QUETIAPINE FUMARATE
     Dosage: UNKNOWN
     Route: 048
     Dates: start: 20130827
  2. CHLORPHENIRAMINE. [Concomitant]
     Active Substance: CHLORPHENIRAMINE
  3. CAFFEINE. [Concomitant]
     Active Substance: CAFFEINE

REACTIONS (18)
  - Abdominal discomfort [Unknown]
  - Amblyopia [Unknown]
  - Back pain [Unknown]
  - Vertigo [Unknown]
  - Muscle rigidity [Unknown]
  - Dizziness [Unknown]
  - Agitation [Unknown]
  - Somnolence [Unknown]
  - Balance disorder [Unknown]
  - Nausea [Unknown]
  - Dementia [Unknown]
  - Dysarthria [Unknown]
  - Ataxia [Unknown]
  - Parkinsonism [Unknown]
  - Haemoglobin decreased [Unknown]
  - Vomiting [Unknown]
  - Depression [Unknown]
  - Platelet count decreased [Unknown]
